FAERS Safety Report 8218116-0 (Version None)
Quarter: 2012Q1

REPORT INFORMATION
  Report Type: 
  Country: None (occurrence: None)
  Receive Date: 20120316
  Receipt Date: 20120316
  Transmission Date: 20120608
  Serious: Yes (Hospitalization)
  Sender: FDA-Public Use
  Company Number: None

PATIENT
  Age: 4 Year
  Sex: Female
  Weight: 16.3 kg

DRUGS (2)
  1. NUTROPIN AQ [Suspect]
     Indication: HYPOPITUITARISM
     Dosage: 0.4 MG QD SUBQ
     Route: 058
     Dates: start: 20120221
  2. NUTROPIN AQ [Suspect]
     Indication: HYPOPITUITARISM
     Dosage: 0.4 MG QD SUBQ
     Route: 058
     Dates: start: 20120303

REACTIONS (4)
  - BLOOD GLUCOSE DECREASED [None]
  - PRODUCT QUALITY ISSUE [None]
  - CONVULSION [None]
  - DRUG DOSE OMISSION [None]
